FAERS Safety Report 17488843 (Version 2)
Quarter: 2020Q1

REPORT INFORMATION
  Report Type: Spontaneous
  Country: US (occurrence: US)
  Receive Date: 20200303
  Receipt Date: 20200309
  Transmission Date: 20200409
  Serious: Yes (Hospitalization, Other)
  Sender: FDA-Public Use
  Company Number: US-ALKERMES INC.-ALK-2020-000938

PATIENT
  Age: 21 Year
  Sex: Male
  Weight: 81.63 kg

DRUGS (1)
  1. VIVITROL [Suspect]
     Active Substance: NALTREXONE
     Indication: DRUG DEPENDENCE
     Dosage: 380 MG, QMO
     Route: 030
     Dates: start: 20200207

REACTIONS (14)
  - Injection site infection [Unknown]
  - Injection site reaction [Unknown]
  - Dyspnoea [Recovered/Resolved]
  - Injection site pain [Unknown]
  - Injection site cellulitis [Unknown]
  - Injection site haematoma [Unknown]
  - Injection site discharge [Unknown]
  - Injection site induration [Unknown]
  - Injection site abscess [Recovering/Resolving]
  - Injection site mass [Unknown]
  - Injection site granuloma [Unknown]
  - Injection site necrosis [Unknown]
  - Injection site oedema [Unknown]
  - Injection site cyst [Unknown]

NARRATIVE: CASE EVENT DATE: 20200227
